FAERS Safety Report 9459293 (Version 4)
Quarter: 2014Q2

REPORT INFORMATION
  Report Type: Report from Study
  Country: CA (occurrence: CA)
  Receive Date: 20130815
  Receipt Date: 20140606
  Transmission Date: 20141212
  Serious: Yes (Other)
  Sender: FDA-Public Use
  Company Number: CA-ROCHE-1162770

PATIENT
  Age: 46 Year
  Sex: Female
  Weight: 101.6 kg

DRUGS (16)
  1. ACTEMRA [Suspect]
     Indication: RHEUMATOID ARTHRITIS
     Route: 042
     Dates: start: 20101130
  2. ACTEMRA [Suspect]
     Route: 042
     Dates: start: 20101229
  3. ACTEMRA [Suspect]
     Route: 042
     Dates: start: 20110601
  4. ACTEMRA [Suspect]
     Route: 042
     Dates: start: 20110927
  5. ACTEMRA [Suspect]
     Route: 042
     Dates: start: 20120928
  6. RITUXAN [Suspect]
     Indication: RHEUMATOID ARTHRITIS
     Route: 042
     Dates: start: 20080430, end: 20080930
  7. PLAQUENIL [Suspect]
     Indication: PRODUCT USED FOR UNKNOWN INDICATION
     Route: 065
  8. SULFASALAZINE [Concomitant]
  9. METHOTREXATE [Concomitant]
  10. NAPROSYN [Concomitant]
  11. SYNTHROID [Concomitant]
  12. FLEXERIL (CANADA) [Concomitant]
  13. VITAMIN B COMPLEX [Concomitant]
  14. TYLENOL #3 (CANADA) [Concomitant]
  15. FOLIC ACID [Concomitant]
  16. GARLIC [Concomitant]

REACTIONS (5)
  - Cataract [Not Recovered/Not Resolved]
  - Upper limb fracture [Recovering/Resolving]
  - Osteoporosis [Unknown]
  - Dyslipidaemia [Not Recovered/Not Resolved]
  - Fall [Unknown]
